FAERS Safety Report 6724260-7 (Version None)
Quarter: 2010Q2

REPORT INFORMATION
  Report Type: 
  Country: None (occurrence: None)
  Receive Date: 20100513
  Receipt Date: 20100507
  Transmission Date: 20101027
  Serious: Yes (Life-Threatening, Hospitalization)
  Sender: FDA-Public Use
  Company Number: DE-ELI_LILLY_AND_COMPANY-DE201003003964

PATIENT
  Sex: Male

DRUGS (8)
  1. BYETTA [Suspect]
     Dosage: 10 UG, DAILY (1/D)
     Route: 058
     Dates: start: 20091201
  2. SIOFOR [Concomitant]
     Dosage: 1000 MG, 3/D
     Route: 065
  3. NOVONORM [Concomitant]
     Dosage: 2 MG, 3/D
     Route: 065
  4. DIOVAN HCT [Concomitant]
     Dosage: 160/12.5 MG, DAILY (1/D)
     Route: 065
  5. NEBIVOLOL [Concomitant]
     Dosage: 5 MG, DAILY (1/D)
     Route: 065
  6. LOCOL [Concomitant]
     Dosage: 80 D/F, 2/D (AT NIGHT)
     Route: 065
  7. FALITHROM [Concomitant]
     Dosage: UNK, ACCORDING TO SCHEME
     Route: 065
  8. FUROSEMIDE [Concomitant]
     Dosage: 40 MG, AS NEEDED
     Route: 065

REACTIONS (7)
  - BLOOD GLUCOSE INCREASED [None]
  - BLOOD PRESSURE INCREASED [None]
  - DEEP VEIN THROMBOSIS [None]
  - INTRACARDIAC THROMBUS [None]
  - NAUSEA [None]
  - PULMONARY EMBOLISM [None]
  - WEIGHT DECREASED [None]
